FAERS Safety Report 16566341 (Version 1)
Quarter: 2019Q3

REPORT INFORMATION
  Report Type: Report from Study
  Country: BR (occurrence: BR)
  Receive Date: 20190712
  Receipt Date: 20190712
  Transmission Date: 20191004
  Serious: Yes (Other)
  Sender: FDA-Public Use
  Company Number: BR-AMREGENT-20191439

PATIENT
  Age: 90 Year
  Sex: Female

DRUGS (2)
  1. FERINJECT [Suspect]
     Active Substance: FERRIC CARBOXYMALTOSE
     Dosage: 500 MG /ONE AMPOULE
     Route: 042
     Dates: start: 20190610
  2. RITMONORM [Concomitant]
     Active Substance: PROPAFENONE HYDROCHLORIDE
     Dosage: UNKNOWN
     Route: 065

REACTIONS (2)
  - Pneumonia [Unknown]
  - Anaemia [Unknown]

NARRATIVE: CASE EVENT DATE: 201906
